FAERS Safety Report 6135767-8 (Version None)
Quarter: 2009Q1

REPORT INFORMATION
  Report Type: 
  Country: None (occurrence: None)
  Receive Date: 20090327
  Receipt Date: 20090325
  Transmission Date: 20090719
  Serious: Yes (Life-Threatening, Hospitalization)
  Sender: FDA-Public Use
  Company Number: PHHY2009ES10987

PATIENT
  Age: 77 Year
  Sex: Female

DRUGS (6)
  1. VOLTAREN [Suspect]
     Indication: RADIUS FRACTURE
     Dosage: 50 MG, TID
     Dates: start: 20080904, end: 20080911
  2. ALDOCUMAR [Interacting]
     Indication: CARDIAC VALVE DISEASE
     Dosage: 1MH
     Route: 048
  3. OMEPRAZOLE [Concomitant]
     Route: 048
  4. FUROSEMIDE [Concomitant]
     Indication: HYPERTENSION
     Route: 048
  5. COZAAR INICIO [Concomitant]
     Indication: HYPERTENSION
     Dosage: 12.5 MG
     Route: 048
  6. COZAAR INICIO [Concomitant]
     Dosage: 25 MG
     Route: 048

REACTIONS (6)
  - DRUG INTERACTION [None]
  - ENDOSCOPY UPPER GASTROINTESTINAL TRACT [None]
  - GASTRIC ULCER [None]
  - GASTROINTESTINAL HAEMORRHAGE [None]
  - OSTEOARTHRITIS [None]
  - POLYP [None]
